FAERS Safety Report 13175923 (Version 3)
Quarter: 2018Q3

REPORT INFORMATION
  Report Type: Report from Study
  Country: DE (occurrence: DE)
  Receive Date: 20170201
  Receipt Date: 20180712
  Transmission Date: 20181010
  Serious: Yes (Hospitalization)
  Sender: FDA-Public Use
  Company Number: DE-JNJFOC-20170127311

PATIENT
  Age: 85 Year
  Sex: Male

DRUGS (4)
  1. RIVAROXABAN [Suspect]
     Active Substance: RIVAROXABAN
     Indication: ATRIAL FIBRILLATION
     Route: 048
     Dates: end: 20180118
  2. HEPARIN?FRACTION [Concomitant]
     Active Substance: HEPARIN SODIUM
     Route: 065
     Dates: start: 20170121, end: 20170124
  3. HEPARIN [Concomitant]
     Active Substance: HEPARIN SODIUM
     Route: 065
     Dates: start: 20170122, end: 20170124
  4. HEPARIN?FRACTION [Concomitant]
     Active Substance: HEPARIN SODIUM
     Route: 065
     Dates: start: 20170121, end: 20170121

REACTIONS (1)
  - Diverticulum intestinal haemorrhagic [Recovered/Resolved]

NARRATIVE: CASE EVENT DATE: 20170118
